FAERS Safety Report 8519416 (Version 4)
Quarter: 2014Q3

REPORT INFORMATION
  Report Type: Report from Study
  Country: US (occurrence: US)
  Receive Date: 20120418
  Receipt Date: 20140919
  Transmission Date: 20150326
  Serious: Yes (Hospitalization)
  Sender: FDA-Public Use
  Company Number: US-ACTELION-A-US2012-63964

PATIENT
  Age: 63 Year
  Sex: Male

DRUGS (4)
  1. REVATIO [Concomitant]
     Active Substance: SILDENAFIL CITRATE
  2. SILDENAFIL [Concomitant]
     Active Substance: SILDENAFIL
  3. DIGOXIN. [Concomitant]
     Active Substance: DIGOXIN
  4. TRACLEER [Suspect]
     Active Substance: BOSENTAN\BOSENTAN MONOHYDRATE
     Indication: PULMONARY ARTERIAL HYPERTENSION
     Dosage: UNK
     Route: 048

REACTIONS (9)
  - Dystonia [Unknown]
  - Cardiac failure congestive [Unknown]
  - Arrhythmia [Unknown]
  - Blood pressure increased [Recovered/Resolved]
  - Chronic obstructive pulmonary disease [Unknown]
  - Atrial fibrillation [Unknown]
  - Pericardial effusion [Recovered/Resolved]
  - Heart rate increased [Recovered/Resolved]
  - Cardiomyopathy [Unknown]

NARRATIVE: CASE EVENT DATE: 20120404
